FAERS Safety Report 10086494 (Version 2)
Quarter: 2014Q2

REPORT INFORMATION
  Report Type: Spontaneous
  Country: CA (occurrence: CA)
  Receive Date: 20140418
  Receipt Date: 20140424
  Transmission Date: 20141212
  Serious: Yes (Hospitalization)
  Sender: FDA-Public Use
  Company Number: CA-PFIZER INC-2014106624

PATIENT
  Age: 80 Year
  Sex: Male
  Weight: 95 kg

DRUGS (14)
  1. AMIODARONE HCL [Suspect]
     Dosage: 100 MG, ONCE DAILY
     Route: 048
  2. PRADAXA [Suspect]
     Dosage: 110 MG, 2 EVERY DAY
     Route: 048
  3. AMIODARONE [Concomitant]
     Dosage: UNK
  4. CARVEDILOL [Concomitant]
     Dosage: UNK
  5. FUROSEMIDE [Concomitant]
     Dosage: UNK
  6. LAMISIL [Concomitant]
     Dosage: UNK
  7. LEVOTHYROXINE [Concomitant]
     Dosage: UNK
  8. PENNSAID [Concomitant]
     Dosage: UNK
     Route: 061
  9. RAMIPRIL [Concomitant]
     Dosage: UNK
  10. ROSUVASTATIN [Concomitant]
     Dosage: UNK
  11. SPIRONOLACTONE [Concomitant]
     Dosage: UNK
  12. TRAMACET [Concomitant]
     Dosage: UNK
  13. TYLENOL ARTHRITIS EXTENDED RELIEF [Concomitant]
     Dosage: UNK
  14. VOLTAREN [Concomitant]
     Dosage: UNK

REACTIONS (2)
  - Haemorrhoids [Recovered/Resolved]
  - Lower gastrointestinal haemorrhage [Recovered/Resolved]
